FAERS Safety Report 8625783-6 (Version None)
Quarter: 2012Q3

REPORT INFORMATION
  Report Type: 
  Country: None (occurrence: None)
  Receive Date: 20120827
  Receipt Date: 20120823
  Transmission Date: 20120928
  Serious: Yes (Hospitalization)
  Sender: FDA-Public Use
  Company Number: ZA-ROCHE-1106749

PATIENT
  Age: 41 Year
  Sex: Female

DRUGS (8)
  1. MYCOPHENOLATE MOFETIL (CELLCEPT) [Suspect]
     Indication: PRODUCT USED FOR UNKNOWN INDICATION
  2. PREDNISONE TAB [Concomitant]
  3. VALCYTE [Concomitant]
     Indication: PROPHYLAXIS
     Dosage: DRUG DISCONTINUED
  4. MYCOPHENOLATE MOFETIL (CELLCEPT) [Suspect]
  5. PROGRAF [Concomitant]
  6. BACTRIM [Concomitant]
     Indication: PROPHYLAXIS
     Dosage: DRUG DISCONTINUED
  7. PROGRAF [Concomitant]
  8. OMEPRAZOLE [Concomitant]
     Indication: PROPHYLAXIS
     Dosage: DRUG DISCONTINUED

REACTIONS (3)
  - GASTRITIS [None]
  - WHITE BLOOD CELL COUNT DECREASED [None]
  - PYELONEPHRITIS [None]
